FAERS Safety Report 23850071 (Version 2)
Quarter: 2024Q2

REPORT INFORMATION
  Report Type: Spontaneous
  Country: US (occurrence: US)
  Receive Date: 20240513
  Receipt Date: 20240520
  Transmission Date: 20240716
  Serious: Yes (Hospitalization, Other)
  Sender: FDA-Public Use
  Company Number: US-ORGANON-O2405CAN000726

PATIENT

DRUGS (5)
  1. REMERON [Suspect]
     Active Substance: MIRTAZAPINE
     Indication: Depression
     Dosage: 45 MILLIGRAM, QD
  2. REMERON [Suspect]
     Active Substance: MIRTAZAPINE
     Dosage: DECREASED IT BY 7.5 MG PER MONTH
  3. REMERON [Suspect]
     Active Substance: MIRTAZAPINE
     Dosage: 21.5 MILLIGRAM, IN THE NIGHT
  4. REMERON [Suspect]
     Active Substance: MIRTAZAPINE
     Dosage: 21.5 MILLIGRAM, IN THE MORNING
  5. REMERON [Suspect]
     Active Substance: MIRTAZAPINE
     Dosage: 45 MILLIGRAM, QD (BACK ON FULL DOSE)

REACTIONS (16)
  - COVID-19 [Not Recovered/Not Resolved]
  - Seizure [Not Recovered/Not Resolved]
  - Drug dependence [Not Recovered/Not Resolved]
  - Insomnia [Recovered/Resolved]
  - Tremor [Recovered/Resolved]
  - Musculoskeletal stiffness [Not Recovered/Not Resolved]
  - Chest discomfort [Not Recovered/Not Resolved]
  - Dyspepsia [Not Recovered/Not Resolved]
  - Nervous system disorder [Not Recovered/Not Resolved]
  - Hyperventilation [Not Recovered/Not Resolved]
  - Hiatus hernia [Not Recovered/Not Resolved]
  - Diaphragmatic spasm [Not Recovered/Not Resolved]
  - Emotional distress [Not Recovered/Not Resolved]
  - Anxiety [Not Recovered/Not Resolved]
  - Dizziness [Not Recovered/Not Resolved]
  - Product use issue [Unknown]
